FAERS Safety Report 15404960 (Version 1)
Quarter: 2018Q3

REPORT INFORMATION
  Report Type: Spontaneous
  Country: JP (occurrence: JP)
  Receive Date: 20180920
  Receipt Date: 20180920
  Transmission Date: 20181010
  Serious: Yes (Other)
  Sender: FDA-Public Use
  Company Number: PHJP2018JP016529

PATIENT

DRUGS (2)
  1. RIVASTIGMINE. [Suspect]
     Active Substance: RIVASTIGMINE
     Dosage: EXCESSIVE DOSE
     Route: 065
  2. RIVASTIGMINE. [Suspect]
     Active Substance: RIVASTIGMINE
     Indication: DEMENTIA
     Dosage: UNK
     Route: 062

REACTIONS (2)
  - Toxicity to various agents [Unknown]
  - Overdose [Unknown]
